FAERS Safety Report 8908710 (Version 2)
Quarter: 2012Q4

REPORT INFORMATION
  Report Type: Report from Study
  Country: US (occurrence: US)
  Receive Date: 20121114
  Receipt Date: 20121116
  Transmission Date: 20130627
  Serious: Yes (Hospitalization)
  Sender: FDA-Public Use
  Company Number: US-ROCHE-1151411

PATIENT
  Age: 54 Year
  Sex: Female
  Weight: 64 kg

DRUGS (3)
  1. PEG-INTERFERON ALFA 2A [Suspect]
     Indication: CHRONIC HEPATITIS C
     Dosage: Most recent dose on 19 Oct 2012
     Route: 065
     Dates: start: 20120928
  2. RIBAVIRIN [Suspect]
     Indication: CHRONIC HEPATITIS C
     Dosage: Most recent dose on 24 Oct 2012
     Route: 065
     Dates: start: 20120928
  3. TELAPREVIR [Suspect]
     Indication: CHRONIC HEPATITIS C
     Dosage: Most recent dose on 24 Oct 2012
     Route: 065
     Dates: start: 20120928

REACTIONS (1)
  - Oedema [Not Recovered/Not Resolved]
